FAERS Safety Report 5742960-2 (Version None)
Quarter: 2008Q2

REPORT INFORMATION
  Report Type: 
  Country: None (occurrence: None)
  Receive Date: 20080519
  Receipt Date: 20080514
  Transmission Date: 20081010
  Serious: Yes (Death, Hospitalization)
  Sender: FDA-Public Use
  Company Number: JP-ASTRAZENECA-2008AP03682

PATIENT
  Age: 92 Year
  Sex: Female

DRUGS (4)
  1. CRESTOR [Suspect]
     Route: 048
     Dates: end: 20080312
  2. ADALAT [Concomitant]
     Route: 048
  3. DIOVAN [Concomitant]
     Route: 048
  4. LASIX [Concomitant]
     Route: 048

REACTIONS (2)
  - CARDIAC FAILURE [None]
  - RHABDOMYOLYSIS [None]
